FAERS Safety Report 11414378 (Version 1)
Quarter: 2015Q3

REPORT INFORMATION
  Report Type: Spontaneous
  Country: US (occurrence: US)
  Receive Date: 20150824
  Receipt Date: 20150824
  Transmission Date: 20151125
  Serious: No
  Sender: FDA-Public Use
  Company Number: US-PERNIX THERAPEUTICS-2015PT000111

PATIENT

DRUGS (2)
  1. NORCO (VICODIN) [Concomitant]
     Indication: MUSCULOSKELETAL PAIN
     Dosage: 10 MG, UNK
     Route: 048
  2. ZOHYDRO [Suspect]
     Active Substance: HYDROCODONE BITARTRATE
     Indication: MUSCULOSKELETAL PAIN
     Dosage: 20 MG, DAILY
     Route: 048
     Dates: start: 201502, end: 20150410

REACTIONS (4)
  - Headache [Unknown]
  - Constipation [Unknown]
  - Presyncope [Unknown]
  - Dizziness [Unknown]

NARRATIVE: CASE EVENT DATE: 2015
